FAERS Safety Report 9907980 (Version 1)
Quarter: 2014Q1

REPORT INFORMATION
  Report Type: Report from Study
  Country: DE (occurrence: DE)
  Receive Date: 20140219
  Receipt Date: 20140219
  Transmission Date: 20141002
  Serious: Yes (Hospitalization)
  Sender: FDA-Public Use
  Company Number: DE-ROCHE-1347977

PATIENT
  Age: 59 Year
  Sex: Female

DRUGS (6)
  1. TOCILIZUMAB [Suspect]
     Indication: RHEUMATOID ARTHRITIS
     Route: 042
     Dates: start: 200902, end: 20100407
  2. TOCILIZUMAB [Suspect]
     Route: 042
     Dates: start: 20101020
  3. TOCILIZUMAB [Suspect]
     Route: 042
     Dates: start: 20110420, end: 20110817
  4. TOCILIZUMAB [Suspect]
     Route: 042
     Dates: start: 20120216, end: 20120815
  5. TOCILIZUMAB [Suspect]
     Route: 042
     Dates: start: 20130422
  6. METHOTREXATE [Concomitant]
     Indication: RHEUMATOID ARTHRITIS
     Route: 065
     Dates: start: 200708

REACTIONS (1)
  - Bunion operation [Unknown]
